FAERS Safety Report 6842942-3 (Version None)
Quarter: 2010Q3

REPORT INFORMATION
  Report Type: 
  Country: None (occurrence: None)
  Receive Date: 20100714
  Receipt Date: 20071008
  Transmission Date: 20110219
  Serious: No
  Sender: FDA-Public Use
  Company Number: US-PFIZER INC-2007067138

PATIENT
  Sex: Male
  Weight: 60 kg

DRUGS (5)
  1. CHANTIX [Suspect]
     Indication: SMOKING CESSATION THERAPY
     Dates: start: 20070501
  2. BYETTA [Interacting]
     Indication: DIABETES MELLITUS
     Dates: start: 20070501
  3. NEURONTIN [Concomitant]
  4. METFORMIN HCL [Concomitant]
  5. VITAMINS [Concomitant]

REACTIONS (2)
  - DRUG INTERACTION [None]
  - MALAISE [None]
